FAERS Safety Report 7297851-5 (Version None)
Quarter: 2011Q1

REPORT INFORMATION
  Report Type: 
  Country: None (occurrence: None)
  Receive Date: 20110217
  Receipt Date: 20101207
  Transmission Date: 20110831
  Serious: No
  Sender: FDA-Public Use
  Company Number: US-KINGPHARMUSA00001-K201001495

PATIENT
  Age: 58 Year
  Sex: Female

DRUGS (3)
  1. TREXIMET [Concomitant]
     Indication: HEADACHE
     Dosage: 2-3TIMES WEEKLY
  2. FLECTOR [Suspect]
     Indication: BACK PAIN
  3. FLECTOR [Suspect]
     Indication: NECK PAIN
     Dosage: 1 PATCH, Q12H
     Route: 061
     Dates: start: 20101203

REACTIONS (2)
  - RASH PRURITIC [None]
  - URTICARIA [None]
